FAERS Safety Report 10901081 (Version 1)
Quarter: 2015Q1

REPORT INFORMATION
  Report Type: Spontaneous
  Country: MX (occurrence: MX)
  Receive Date: 20150310
  Receipt Date: 20150310
  Transmission Date: 20150721
  Serious: Yes (Other)
  Sender: FDA-Public Use
  Company Number: MX-BAYER-2015-018487

PATIENT
  Age: 59 Year
  Sex: Male

DRUGS (3)
  1. ADEMPAS [Suspect]
     Active Substance: RIOCIGUAT
     Indication: PULMONARY HYPERTENSION
     Dosage: 2.5 MG, 3 XDIW
     Route: 048
     Dates: start: 201412
  2. ADEMPAS [Suspect]
     Active Substance: RIOCIGUAT
     Indication: PULMONARY HYPERTENSION
     Dosage: 2 MG, TID
     Dates: start: 20141222
  3. OXYGEN. [Concomitant]
     Active Substance: OXYGEN

REACTIONS (10)
  - Blood pressure increased [None]
  - Gait disturbance [Not Recovered/Not Resolved]
  - Oxygen supplementation [None]
  - Headache [Not Recovered/Not Resolved]
  - Musculoskeletal discomfort [Recovering/Resolving]
  - Abdominal distension [None]
  - Fatigue [Not Recovered/Not Resolved]
  - Tinnitus [Not Recovered/Not Resolved]
  - Erythema [Recovered/Resolved]
  - Abdominal discomfort [None]

NARRATIVE: CASE EVENT DATE: 20150112
